FAERS Safety Report 25227773 (Version 1)
Quarter: 2025Q2

REPORT INFORMATION
  Report Type: Spontaneous
  Country: CN (occurrence: CN)
  Receive Date: 20250423
  Receipt Date: 20250423
  Transmission Date: 20250716
  Serious: Yes (Hospitalization, Other)
  Sender: BAXTER
  Company Number: None

PATIENT
  Age: 56 Year
  Sex: Female
  Weight: 60 kg

DRUGS (4)
  1. CYCLOPHOSPHAMIDE [Suspect]
     Active Substance: CYCLOPHOSPHAMIDE
     Indication: Breast cancer female
     Dosage: 1 G, QD, MICROPUMP CONTINUOUS INTRAVENOUS INJECTION ONCE
     Route: 041
     Dates: start: 20250410, end: 20250410
  2. PIRARUBICIN HYDROCHLORIDE [Suspect]
     Active Substance: PIRARUBICIN HYDROCHLORIDE
     Indication: Breast cancer female
     Dosage: 60 MG, QD
     Route: 041
     Dates: start: 20250410, end: 20250410
  3. SODIUM CHLORIDE [Suspect]
     Active Substance: SODIUM CHLORIDE
     Indication: Medication dilution
     Dosage: 50 ML, QD, ROUTE OF ADMINISTRATION: INJECTION IN PUMP
     Route: 065
     Dates: start: 20250410, end: 20250410
  4. DEXTROSE [Suspect]
     Active Substance: DEXTROSE MONOHYDRATE
     Indication: Breast cancer female
     Dosage: 250 ML, QD
     Route: 041
     Dates: start: 20250410, end: 20250410

REACTIONS (3)
  - Discomfort [Recovering/Resolving]
  - Nausea [Recovered/Resolved]
  - Vomiting [Recovered/Resolved]

NARRATIVE: CASE EVENT DATE: 20250412
